FAERS Safety Report 9230537 (Version 3)
Quarter: 2013Q4

REPORT INFORMATION
  Report Type: Spontaneous
  Country: US (occurrence: US)
  Receive Date: 20130415
  Receipt Date: 20131009
  Transmission Date: 20140711
  Serious: Yes (Other)
  Sender: FDA-Public Use
  Company Number: US-PFIZER INC-2013114736

PATIENT
  Age: 51 Year
  Sex: Female
  Weight: 71 kg

DRUGS (6)
  1. FLAGYL [Suspect]
     Indication: DIVERTICULITIS
     Dosage: 500 MG, UNK
     Route: 042
     Dates: start: 20071030
  2. FLAGYL [Suspect]
     Dosage: UNK
     Route: 042
     Dates: start: 20100410
  3. FLAGYL [Suspect]
     Dosage: 500 MG, 1X/DAY
     Route: 042
     Dates: start: 20100428, end: 20100429
  4. FLAGYL [Suspect]
     Indication: DIVERTICULITIS
     Dosage: 500 MG, 4X/DAY
     Route: 048
     Dates: start: 20071031
  5. FLAGYL [Suspect]
     Dosage: 500 MG, ONE TABLET, 4X/DAY
     Route: 048
     Dates: start: 20100430
  6. FLAGYL [Suspect]
     Dosage: 500 MG, 2X/DAY
     Route: 048
     Dates: start: 20100601

REACTIONS (2)
  - Suspected transmission of an infectious agent via product [Unknown]
  - Fungal infection [Unknown]
